FAERS Safety Report 4883604-1 (Version None)
Quarter: 2006Q1

REPORT INFORMATION
  Report Type: 
  Country: None (occurrence: None)
  Receive Date: 20060113
  Receipt Date: 20051229
  Transmission Date: 20060701
  Serious: No
  Sender: FDA-Public Use
  Company Number: US200512003566

PATIENT
  Sex: Female
  Weight: 61.7 kg

DRUGS (3)
  1. CYMBALTA [Suspect]
     Indication: DEPRESSION
     Dosage: 60 MG, UNK; ORAL
     Route: 048
     Dates: start: 20051006
  2. PROVIGIL (MODAFINL) [Concomitant]
  3. SYNTHROID [Concomitant]

REACTIONS (1)
  - HEPATOCELLULAR DAMAGE [None]
